FAERS Safety Report 4459788-6 (Version None)
Quarter: 2004Q3

REPORT INFORMATION
  Report Type: 
  Country: None (occurrence: None)
  Receive Date: 20040928
  Receipt Date: 20040616
  Transmission Date: 20050211
  Serious: No
  Sender: FDA-Public Use
  Company Number: US-BRISTOL-MYERS SQUIBB COMPANY-12617171

PATIENT
  Sex: Male

DRUGS (1)
  1. KENALOG-40 [Suspect]
     Indication: ARTHRALGIA
     Route: 030
     Dates: start: 20040324, end: 20040324

REACTIONS (6)
  - ABDOMINAL PAIN [None]
  - BLOOD IMMUNOGLOBULIN E INCREASED [None]
  - MULTIPLE ALLERGIES [None]
  - NAIL DISCOLOURATION [None]
  - URTICARIA [None]
  - VOMITING [None]
